FAERS Safety Report 18408230 (Version 9)
Quarter: 2023Q2

REPORT INFORMATION
  Report Type: Report from Study
  Country: FR (occurrence: FR)
  Receive Date: 20201020
  Receipt Date: 20230620
  Transmission Date: 20230722
  Serious: Yes (Death, Life-Threatening, Hospitalization, Other)
  Sender: FDA-Public Use
  Company Number: FR-GLAXOSMITHKLINE-FR2020158924

PATIENT
  Age: 74 Year
  Sex: Male

DRUGS (209)
  1. MORPHINE SULFATE [Suspect]
     Active Substance: MORPHINE SULFATE
     Indication: Product used for unknown indication
     Dosage: UNK
     Route: 065
  2. MORPHINE SULFATE [Suspect]
     Active Substance: MORPHINE SULFATE
     Dosage: UNK
     Route: 065
  3. MORPHINE SULFATE [Suspect]
     Active Substance: MORPHINE SULFATE
     Dosage: UNK
     Route: 065
  4. MORPHINE SULFATE [Suspect]
     Active Substance: MORPHINE SULFATE
     Dosage: UNK
     Route: 065
  5. NOREPINEPHRINE [Suspect]
     Active Substance: NOREPINEPHRINE
     Indication: Sedation
     Dosage: 8 MG, 3 DAY
     Route: 042
     Dates: start: 20200709, end: 20200712
  6. NOREPINEPHRINE [Suspect]
     Active Substance: NOREPINEPHRINE
     Dosage: 0.8 MILLIGRAM, Q1HR
     Route: 042
     Dates: start: 20200709, end: 20200712
  7. NOREPINEPHRINE [Suspect]
     Active Substance: NOREPINEPHRINE
     Dosage: 0.8 MG/HR, CO
     Route: 042
     Dates: start: 20200709, end: 20200712
  8. NIMBEX [Suspect]
     Active Substance: CISATRACURIUM BESYLATE
     Indication: Endotracheal intubation
     Dosage: 20 MILLIGRAM, QD
     Route: 042
     Dates: start: 20200715, end: 20200715
  9. NIMBEX [Suspect]
     Active Substance: CISATRACURIUM BESYLATE
     Indication: Neuromuscular blocking therapy
     Dosage: UNK
     Route: 042
  10. CALCIUM PHOSPHATE, DIBASIC, ANHYDROUS\MAGNESIUM GLYCEROPHOSPHATE\PHOSP [Suspect]
     Active Substance: CALCIUM PHOSPHATE, DIBASIC, ANHYDROUS\MAGNESIUM GLYCEROPHOSPHATE\PHOSPHORIC ACID\SODIUM PHOSPHATE, D
     Indication: Pneumonia
     Dosage: 6 GRAM, QD
     Route: 042
     Dates: start: 20200708, end: 20200715
  11. CALCIUM PHOSPHATE, DIBASIC, ANHYDROUS\MAGNESIUM GLYCEROPHOSPHATE\PHOSP [Suspect]
     Active Substance: CALCIUM PHOSPHATE, DIBASIC, ANHYDROUS\MAGNESIUM GLYCEROPHOSPHATE\PHOSPHORIC ACID\SODIUM PHOSPHATE, D
     Indication: Product used for unknown indication
     Dosage: UNK
     Route: 042
  12. THIAMINE HYDROCHLORIDE [Suspect]
     Active Substance: THIAMINE HYDROCHLORIDE
     Indication: Product used for unknown indication
     Dosage: UNK
     Route: 065
  13. THIAMINE HYDROCHLORIDE [Suspect]
     Active Substance: THIAMINE HYDROCHLORIDE
     Dosage: UNK
     Route: 065
  14. THIAMINE HYDROCHLORIDE [Suspect]
     Active Substance: THIAMINE HYDROCHLORIDE
     Dosage: UNK
     Route: 065
  15. THIAMINE HYDROCHLORIDE [Suspect]
     Active Substance: THIAMINE HYDROCHLORIDE
     Dosage: UNK
     Route: 065
  16. FUROSEMIDE [Suspect]
     Active Substance: FUROSEMIDE
     Indication: Product used for unknown indication
     Dosage: UNK
     Route: 065
  17. FUROSEMIDE [Suspect]
     Active Substance: FUROSEMIDE
     Dosage: UNK FRUSEMIDE
     Route: 065
  18. FUROSEMIDE [Suspect]
     Active Substance: FUROSEMIDE
     Dosage: UNK
     Route: 065
  19. FUROSEMIDE [Suspect]
     Active Substance: FUROSEMIDE
     Dosage: UNK
     Route: 065
  20. FUROSEMIDE [Suspect]
     Active Substance: FUROSEMIDE
     Dosage: UNK FRUSEMIDE
     Route: 065
  21. FUROSEMIDE [Suspect]
     Active Substance: FUROSEMIDE
     Dosage: UNK
     Route: 065
  22. FUROSEMIDE [Suspect]
     Active Substance: FUROSEMIDE
     Route: 065
  23. CALCIUM GLUCONATE [Suspect]
     Active Substance: CALCIUM GLUCONATE
     Indication: Product used for unknown indication
     Dosage: UNK
     Route: 065
  24. CALCIUM GLUCONATE [Suspect]
     Active Substance: CALCIUM GLUCONATE
     Dosage: UNK
     Route: 065
  25. CALCIUM GLUCONATE [Suspect]
     Active Substance: CALCIUM GLUCONATE
     Dosage: UNK
     Route: 065
  26. CLONIDINE HYDROCHLORIDE [Suspect]
     Active Substance: CLONIDINE HYDROCHLORIDE
     Indication: Hypertension
     Dosage: UNK
     Route: 042
     Dates: start: 20200717, end: 20200717
  27. CLONIDINE HYDROCHLORIDE [Suspect]
     Active Substance: CLONIDINE HYDROCHLORIDE
     Indication: Hypertension
  28. AMIODARONE [Suspect]
     Active Substance: AMIODARONE
     Indication: Atrial fibrillation
     Dosage: 907.2 MILLIGRAM DAILY
     Route: 065
     Dates: start: 20200725, end: 20200727
  29. AMIODARONE [Suspect]
     Active Substance: AMIODARONE
     Dosage: 1814.4 MG CUMULATIVE DOSE
     Route: 065
     Dates: start: 20200725, end: 20200727
  30. MORPHINE HYDROCHLORIDE [Suspect]
     Active Substance: MORPHINE HYDROCHLORIDE
     Indication: Product used for unknown indication
     Dosage: UNK
     Route: 065
  31. MORPHINE HYDROCHLORIDE [Suspect]
     Active Substance: MORPHINE HYDROCHLORIDE
     Dosage: UNK
     Route: 065
  32. MORPHINE HYDROCHLORIDE [Suspect]
     Active Substance: MORPHINE HYDROCHLORIDE
     Dosage: UNK
     Route: 065
  33. MORPHINE HYDROCHLORIDE [Suspect]
     Active Substance: MORPHINE HYDROCHLORIDE
     Dosage: UNK
     Route: 065
  34. MORPHINE HYDROCHLORIDE [Suspect]
     Active Substance: MORPHINE HYDROCHLORIDE
     Dosage: UNK
     Route: 065
  35. SUFENTANIL CITRATE [Suspect]
     Active Substance: SUFENTANIL CITRATE
     Indication: Gait disturbance
     Dosage: 33 MCG/MIN, CO
     Route: 042
     Dates: start: 20200709, end: 20200717
  36. SUFENTANIL CITRATE [Suspect]
     Active Substance: SUFENTANIL CITRATE
     Indication: Sedation
     Dosage: UNK
     Route: 042
     Dates: start: 20200709, end: 20200717
  37. SUFENTANIL CITRATE [Suspect]
     Active Substance: SUFENTANIL CITRATE
     Dosage: 0.33 UG/MIN, CO (MINUTE)
     Route: 042
     Dates: start: 20200709, end: 20200717
  38. ACETAZOLAMIDE [Suspect]
     Active Substance: ACETAZOLAMIDE
     Indication: Product used for unknown indication
     Dosage: UNK
     Route: 065
  39. REMIFENTANIL [Suspect]
     Active Substance: REMIFENTANIL
     Indication: Sedation
     Dosage: 0.1 MCG/KG/MIN CO
     Route: 042
     Dates: start: 20200720, end: 20200730
  40. LORAZEPAM [Suspect]
     Active Substance: LORAZEPAM
     Indication: Anxiolytic therapy
     Dosage: 10 MG, DAILY, 2.5 MILLIGRAM, QID
     Route: 048
     Dates: start: 20200726, end: 20200727
  41. LORAZEPAM [Suspect]
     Active Substance: LORAZEPAM
     Dosage: 10 MG, DAILY
     Route: 048
  42. LORAZEPAM [Suspect]
     Active Substance: LORAZEPAM
     Dosage: 10 MG, DAILY
     Route: 048
     Dates: start: 20200726, end: 20200727
  43. LORAZEPAM [Suspect]
     Active Substance: LORAZEPAM
     Dosage: 40 MG, DAILY
     Route: 048
     Dates: start: 20200726, end: 20200727
  44. POLYETHYLENE GLYCOLS [Suspect]
     Active Substance: POLYETHYLENE GLYCOLS
     Indication: Constipation
     Dosage: 4 DOSAGE FORM, QD
     Route: 048
     Dates: start: 20200713, end: 20200715
  45. POLYETHYLENE GLYCOLS [Suspect]
     Active Substance: POLYETHYLENE GLYCOLS
     Dosage: 16 DF, UNK
     Route: 048
  46. POLYETHYLENE GLYCOLS [Suspect]
     Active Substance: POLYETHYLENE GLYCOLS
     Dosage: 2 SACHET, BID
     Route: 065
     Dates: start: 20200713, end: 20200715
  47. ISUPREL [Suspect]
     Active Substance: ISOPROTERENOL HYDROCHLORIDE
     Indication: Product used for unknown indication
     Dosage: UNK
     Route: 065
     Dates: start: 20200711, end: 20200713
  48. OXAZEPAM [Suspect]
     Active Substance: OXAZEPAM
     Indication: Anxiolytic therapy
     Dosage: 20 MG, UNK
     Route: 048
  49. OXAZEPAM [Suspect]
     Active Substance: OXAZEPAM
     Dosage: 10 MG, DAILY
     Route: 048
  50. OXAZEPAM [Suspect]
     Active Substance: OXAZEPAM
     Dosage: 10 MILLIGRAM, QD
     Route: 048
     Dates: start: 20200802, end: 20200804
  51. OXAZEPAM [Suspect]
     Active Substance: OXAZEPAM
     Dosage: 90 MG, UNK
     Route: 048
  52. OXAZEPAM [Suspect]
     Active Substance: OXAZEPAM
     Dosage: 10 MILLIGRAM, DAILY
     Route: 048
     Dates: start: 20200802, end: 20200804
  53. OXAZEPAM [Suspect]
     Active Substance: OXAZEPAM
     Dosage: 10 MILLIGRAM, QD
     Route: 048
  54. OXAZEPAM [Suspect]
     Active Substance: OXAZEPAM
     Dosage: 20 MG, QD
     Route: 048
  55. OXAZEPAM [Suspect]
     Active Substance: OXAZEPAM
     Dosage: 20 MILLIGRAM
     Route: 048
  56. OXAZEPAM [Suspect]
     Active Substance: OXAZEPAM
     Dosage: 90 MILLIGRAM
     Route: 048
  57. LANSOPRAZOLE [Suspect]
     Active Substance: LANSOPRAZOLE
     Indication: Gastrointestinal disorder prophylaxis
     Dosage: 30 MG, QD
     Route: 048
     Dates: start: 20200710, end: 20200805
  58. LANSOPRAZOLE [Suspect]
     Active Substance: LANSOPRAZOLE
     Indication: Gastrointestinal disorder prophylaxis
     Dosage: 78 MG, UNK
     Route: 048
  59. LANSOPRAZOLE [Suspect]
     Active Substance: LANSOPRAZOLE
     Indication: Prophylaxis
     Dosage: 3 MG, DAILY
     Route: 048
     Dates: start: 20200210, end: 20200805
  60. LANSOPRAZOLE [Suspect]
     Active Substance: LANSOPRAZOLE
     Dosage: 3 MG, QD
     Route: 048
     Dates: start: 20200710, end: 20200805
  61. LANSOPRAZOLE [Suspect]
     Active Substance: LANSOPRAZOLE
     Dosage: 78 MG, QD
     Route: 048
     Dates: start: 20200710, end: 20200805
  62. LANSOPRAZOLE [Suspect]
     Active Substance: LANSOPRAZOLE
     Dosage: 30 MG, DAILY [30 MILLIGRAM, QD]
     Route: 048
     Dates: start: 20200710, end: 20200805
  63. LANSOPRAZOLE [Suspect]
     Active Substance: LANSOPRAZOLE
     Dosage: SINGLE
     Route: 048
     Dates: start: 20200710, end: 20200805
  64. LANSOPRAZOLE [Suspect]
     Active Substance: LANSOPRAZOLE
     Dosage: 30 MILLIGRAM, 26 DAYS
     Route: 048
  65. METHYLPREDNISOLONE SODIUM SUCCINATE [Suspect]
     Active Substance: METHYLPREDNISOLONE SODIUM SUCCINATE
     Indication: Acute respiratory distress syndrome
     Dosage: 1200 MG, DAILY [QD]
     Route: 042
     Dates: start: 20200708, end: 20210723
  66. METHYLPREDNISOLONE SODIUM SUCCINATE [Suspect]
     Active Substance: METHYLPREDNISOLONE SODIUM SUCCINATE
     Dosage: 1800 MG, UNK
     Route: 042
  67. METHYLPREDNISOLONE SODIUM SUCCINATE [Suspect]
     Active Substance: METHYLPREDNISOLONE SODIUM SUCCINATE
     Dosage: 120 MG, DAILY
     Route: 042
     Dates: start: 20200708, end: 20200723
  68. SERTRALINE HYDROCHLORIDE [Suspect]
     Active Substance: SERTRALINE HYDROCHLORIDE
     Indication: Depression
     Dosage: 746.35 MG, 15DAYS
     Route: 048
  69. SERTRALINE HYDROCHLORIDE [Suspect]
     Active Substance: SERTRALINE HYDROCHLORIDE
     Indication: Pneumonia
     Dosage: 50 MG, DAILY
     Route: 048
     Dates: start: 20200726, end: 20200810
  70. SERTRALINE HYDROCHLORIDE [Suspect]
     Active Substance: SERTRALINE HYDROCHLORIDE
     Dosage: 746 MG, UNK
     Route: 048
     Dates: start: 20200726, end: 20200810
  71. SERTRALINE HYDROCHLORIDE [Suspect]
     Active Substance: SERTRALINE HYDROCHLORIDE
     Dosage: 746.35 MG, 15DAYS
     Route: 048
  72. SERTRALINE HYDROCHLORIDE [Suspect]
     Active Substance: SERTRALINE HYDROCHLORIDE
     Dosage: 50 MG, DAILY
     Route: 048
  73. SERTRALINE HYDROCHLORIDE [Suspect]
     Active Substance: SERTRALINE HYDROCHLORIDE
     Dosage: 3 INTERNATIONAL UNIT (3 IU, TID)
     Route: 042
     Dates: start: 20200708, end: 20200715
  74. SERTRALINE HYDROCHLORIDE [Suspect]
     Active Substance: SERTRALINE HYDROCHLORIDE
     Dosage: 50 MILLIGRAM, DAILY (50 MILLIGRAM, QD )
     Route: 042
     Dates: start: 20200626, end: 20200810
  75. SPIRAMYCIN [Suspect]
     Active Substance: SPIRAMYCIN
     Indication: Pneumonia
     Dosage: 9 MILLION IU, DAILY (9 MEGA-INTERNATIONAL UNIT, QD)
     Route: 042
     Dates: start: 20200708, end: 20200715
  76. SPIRAMYCIN [Suspect]
     Active Substance: SPIRAMYCIN
     Dosage: 63 IU  INTERNATIONAL UNIT)
     Route: 042
  77. SPIRAMYCIN [Suspect]
     Active Substance: SPIRAMYCIN
     Dosage: 3000000 INTERNATIONAL UNIT, TID
     Route: 042
     Dates: start: 20200708, end: 20200715
  78. SPIRAMYCIN [Suspect]
     Active Substance: SPIRAMYCIN
     Dosage: 3000000 INTERNATIONAL UNIT, TID
     Route: 065
     Dates: start: 20200708, end: 20200715
  79. IMODIUM [Suspect]
     Active Substance: LOPERAMIDE HYDROCHLORIDE
     Indication: Diarrhoea
     Dosage: UNK
     Route: 065
  80. IMODIUM [Suspect]
     Active Substance: LOPERAMIDE HYDROCHLORIDE
     Dosage: 4 MILLIGRAM, QD
     Route: 065
     Dates: start: 20200804, end: 20200804
  81. POTASSIUM CHLORIDE [Suspect]
     Active Substance: POTASSIUM CHLORIDE
     Indication: Product used for unknown indication
     Dosage: UNK
     Route: 065
  82. FUROSEMIDE [Suspect]
     Active Substance: FUROSEMIDE
     Indication: Product used for unknown indication
     Dosage: UNK
     Route: 065
  83. OXAZEPAM [Suspect]
     Active Substance: OXAZEPAM
     Indication: Anxiolytic therapy
     Dosage: 10 MILLIGRAM, QD
     Route: 048
     Dates: start: 20200802, end: 20200804
  84. OXAZEPAM [Suspect]
     Active Substance: OXAZEPAM
     Dosage: 20 MG, DAILY
     Route: 048
  85. OXAZEPAM [Suspect]
     Active Substance: OXAZEPAM
     Dosage: 10 MILLIGRAM, DAILY
     Route: 048
  86. OXAZEPAM [Suspect]
     Active Substance: OXAZEPAM
     Dosage: 90 MILLIGRAM, DAILY
     Route: 048
  87. URAPIDIL [Suspect]
     Active Substance: URAPIDIL
     Indication: Hypertension
     Dosage: 5 MILLIGRAM, Q1HR
     Route: 042
     Dates: start: 20200709, end: 20200709
  88. URAPIDIL [Suspect]
     Active Substance: URAPIDIL
     Dosage: 120 MG, UNK
     Route: 042
  89. HYDROXYZINE [Suspect]
     Active Substance: HYDROXYZINE HYDROCHLORIDE
     Indication: Product used for unknown indication
     Dosage: UNK
     Route: 065
  90. HYDROXYZINE [Suspect]
     Active Substance: HYDROXYZINE HYDROCHLORIDE
     Dosage: UNK
     Route: 065
  91. HYDROXYZINE [Suspect]
     Active Substance: HYDROXYZINE HYDROCHLORIDE
     Dosage: UNK
     Route: 065
  92. HYDROXYZINE [Suspect]
     Active Substance: HYDROXYZINE HYDROCHLORIDE
     Dosage: UNK
     Route: 065
  93. HYDROXYZINE [Suspect]
     Active Substance: HYDROXYZINE HYDROCHLORIDE
     Dosage: UNK
     Route: 065
  94. HYDROXYZINE [Suspect]
     Active Substance: HYDROXYZINE HYDROCHLORIDE
     Dosage: UNK
     Route: 065
  95. HYDROXYZINE [Suspect]
     Active Substance: HYDROXYZINE HYDROCHLORIDE
     Dosage: UNK
     Route: 065
  96. MIDAZOLAM HYDROCHLORIDE [Suspect]
     Active Substance: MIDAZOLAM HYDROCHLORIDE
     Indication: Sedation
     Dosage: 5 MILLIGRAM, Q1H (5 MG/HR, CO)
     Route: 042
     Dates: start: 20200709, end: 20200713
  97. MIDAZOLAM HYDROCHLORIDE [Suspect]
     Active Substance: MIDAZOLAM HYDROCHLORIDE
     Indication: Seizure
     Dosage: UNK
     Route: 042
  98. MIDAZOLAM HYDROCHLORIDE [Suspect]
     Active Substance: MIDAZOLAM HYDROCHLORIDE
     Indication: Seizure
     Dosage: UNK
     Route: 042
  99. RACECADOTRIL [Suspect]
     Active Substance: RACECADOTRIL
     Indication: Product used for unknown indication
     Dosage: UNK
     Route: 065
     Dates: start: 20200727, end: 20200804
  100. RACECADOTRIL [Suspect]
     Active Substance: RACECADOTRIL
     Dosage: 100 MG
     Route: 065
     Dates: start: 20200727, end: 20200804
  101. LORAZEPAM [Suspect]
     Active Substance: LORAZEPAM
     Indication: Anxiolytic therapy
     Dosage: 2.5 MG, QID
     Route: 048
     Dates: start: 20200726, end: 20200727
  102. LORAZEPAM [Suspect]
     Active Substance: LORAZEPAM
     Dosage: 10 MG, UNK
     Route: 048
  103. LORAZEPAM [Suspect]
     Active Substance: LORAZEPAM
     Dosage: 10 MILLIGRAM
     Route: 048
  104. LORAZEPAM [Suspect]
     Active Substance: LORAZEPAM
     Dosage: 10 MG
     Route: 048
  105. LORAZEPAM [Suspect]
     Active Substance: LORAZEPAM
     Dosage: 10 MILLIGRAM,QD
     Route: 048
  106. LORAZEPAM [Suspect]
     Active Substance: LORAZEPAM
     Dosage: 40 MG, QD
     Route: 048
     Dates: start: 20200726, end: 20200727
  107. LORAZEPAM [Suspect]
     Active Substance: LORAZEPAM
     Dosage: 10 MILLIGRAM, QD
     Route: 048
     Dates: start: 20200726, end: 20200727
  108. DIAZEPAM [Suspect]
     Active Substance: DIAZEPAM
     Indication: Product used for unknown indication
     Dosage: UNK
     Route: 065
  109. DIAZEPAM [Suspect]
     Active Substance: DIAZEPAM
     Dosage: 746.354 MG
     Route: 058
  110. DIAZEPAM [Suspect]
     Active Substance: DIAZEPAM
     Dosage: UNK
     Route: 065
  111. LOVENOX [Suspect]
     Active Substance: ENOXAPARIN SODIUM
     Indication: Phlebitis
     Dosage: 6000 IU, SINGLE
     Route: 058
     Dates: start: 20200708, end: 20200807
  112. LOVENOX [Suspect]
     Active Substance: ENOXAPARIN SODIUM
     Dosage: 180 KIU, [180 KILO-INTERNATIONAL UNIT]
     Route: 058
  113. LOVENOX [Suspect]
     Active Substance: ENOXAPARIN SODIUM
     Dosage: 180000 INTERNATIONAL UNIT
     Route: 058
  114. LOVENOX [Suspect]
     Active Substance: ENOXAPARIN SODIUM
     Dosage: 6000 INTERNATIONAL UNIT
     Route: 058
  115. LOVENOX [Suspect]
     Active Substance: ENOXAPARIN SODIUM
     Dosage: 180000 INTERNATIONAL UNIT
     Route: 065
  116. HUMALOG [Suspect]
     Active Substance: INSULIN LISPRO
     Indication: Product used for unknown indication
     Dosage: 1 INTERNATIONAL UNIT
     Route: 065
     Dates: start: 20200709, end: 20200730
  117. LOPERAMIDE HYDROCHLORIDE [Suspect]
     Active Substance: LOPERAMIDE HYDROCHLORIDE
     Indication: Diarrhoea
     Dosage: 4 MILLIGRAM
     Route: 065
     Dates: start: 20200804, end: 20200804
  118. LOPERAMIDE HYDROCHLORIDE [Suspect]
     Active Substance: LOPERAMIDE HYDROCHLORIDE
     Dosage: 4 MG
     Route: 065
  119. PROPOFOL [Suspect]
     Active Substance: PROPOFOL
     Indication: Sedation
     Dosage: 150 MILLIGRAM, Q1HR
     Route: 065
     Dates: start: 20200709, end: 20200720
  120. PROPOFOL [Suspect]
     Active Substance: PROPOFOL
     Dosage: 150 MG/HR, CO
     Route: 065
     Dates: start: 20200709, end: 20200720
  121. ACETAMINOPHEN [Suspect]
     Active Substance: ACETAMINOPHEN
     Indication: Pyrexia
     Dosage: 1 GRAM
     Route: 065
     Dates: start: 20200719, end: 20200730
  122. ACETAMINOPHEN [Suspect]
     Active Substance: ACETAMINOPHEN
     Indication: Pyrexia
     Dosage: 1 GRAM, PRN
     Route: 065
     Dates: start: 20200719, end: 20200730
  123. CEFOTAXIME [Suspect]
     Active Substance: CEFOTAXIME SODIUM
     Indication: Pneumonia
     Dosage: 6 GRAM, 7 DAY
     Dates: start: 20200708, end: 20200715
  124. CEFOTAXIME [Suspect]
     Active Substance: CEFOTAXIME SODIUM
     Dosage: 6 G, UNK
     Route: 042
     Dates: start: 20200708, end: 20200715
  125. CEFOTAXIME [Suspect]
     Active Substance: CEFOTAXIME SODIUM
     Dosage: 42 G, UNK
     Route: 042
  126. CEFOTAXIME [Suspect]
     Active Substance: CEFOTAXIME SODIUM
     Dosage: 84 G, UNK (42 G BID)
     Route: 042
  127. CEFOTAXIME [Suspect]
     Active Substance: CEFOTAXIME SODIUM
     Dosage: 42 G, BID
     Route: 042
     Dates: start: 20200708
  128. CEFOTAXIME [Suspect]
     Active Substance: CEFOTAXIME SODIUM
     Dosage: 6 G
     Route: 042
  129. CEFOTAXIME [Suspect]
     Active Substance: CEFOTAXIME SODIUM
     Dosage: 42 G
  130. CEFOTAXIME [Suspect]
     Active Substance: CEFOTAXIME SODIUM
     Dosage: 2 G, TID
     Dates: start: 20200708, end: 20200715
  131. IPRATROPIUM [Suspect]
     Active Substance: IPRATROPIUM
     Indication: Inhalation therapy
     Dosage: 6 MG, UNK
  132. IPRATROPIUM [Suspect]
     Active Substance: IPRATROPIUM
     Indication: Inhalation therapy
     Dosage: 1.5 MG, Q8H
     Dates: start: 20200730, end: 20200803
  133. IPRATROPIUM [Suspect]
     Active Substance: IPRATROPIUM
     Dosage: 1.5 MG, DAILY [1.5 MILLIGRAM, QD]
     Route: 055
  134. IPRATROPIUM [Suspect]
     Active Substance: IPRATROPIUM
     Dosage: 6 MG, UNK
     Route: 055
  135. IPRATROPIUM [Suspect]
     Active Substance: IPRATROPIUM
     Dosage: 4.5 MG, DAILY (1.5 MG)
     Route: 055
  136. IPRATROPIUM [Suspect]
     Active Substance: IPRATROPIUM
     Dosage: 6 MG
  137. ISOSORBIDE DINITRATE [Suspect]
     Active Substance: ISOSORBIDE DINITRATE
     Indication: Product used for unknown indication
     Dosage: UNK
     Route: 065
     Dates: start: 20200714, end: 20200720
  138. DUPHALAC [Suspect]
     Active Substance: LACTULOSE
     Indication: Constipation
     Dosage: 40 G, DAILY
     Route: 048
     Dates: start: 20200713, end: 20200715
  139. DUPHALAC [Suspect]
     Active Substance: LACTULOSE
     Dosage: 80 MILLIGRAM, BID
     Route: 048
  140. DUPHALAC [Suspect]
     Active Substance: LACTULOSE
     Dosage: 40 MILLIGRAM, BID
     Route: 048
  141. DUPHALAC [Suspect]
     Active Substance: LACTULOSE
     Dosage: 40 G, DAILY (20 G BID)
     Route: 048
     Dates: start: 20200713, end: 20200717
  142. DUPHALAC [Suspect]
     Active Substance: LACTULOSE
     Dosage: 20 MG,0.5 DAY
     Route: 048
     Dates: start: 20200713, end: 20200715
  143. DUPHALAC [Suspect]
     Active Substance: LACTULOSE
     Dosage: 80 MILLIGRAM, BID
     Route: 048
  144. DUPHALAC [Suspect]
     Active Substance: LACTULOSE
     Dosage: 80 MILLIGRAM, BID
     Route: 048
  145. POTASSIUM CHLORIDE [Suspect]
     Active Substance: POTASSIUM CHLORIDE
     Indication: Product used for unknown indication
     Dosage: UNK
     Route: 065
  146. ENOXAPARIN SODIUM [Suspect]
     Active Substance: ENOXAPARIN SODIUM
     Indication: Phlebitis
     Dosage: 6000 IU, UNK
     Route: 058
  147. ENOXAPARIN SODIUM [Suspect]
     Active Substance: ENOXAPARIN SODIUM
     Dosage: MOST RECENT DOSE PRIOR TO AE 07/AUG/2020
     Route: 058
     Dates: start: 20200708, end: 20200807
  148. ENOXAPARIN SODIUM [Suspect]
     Active Substance: ENOXAPARIN SODIUM
     Dosage: 6000 INTERNATIONAL UNIT
     Route: 058
  149. ENOXAPARIN SODIUM [Suspect]
     Active Substance: ENOXAPARIN SODIUM
     Dosage: 6000 INTERNATIONAL UNIT
     Route: 058
  150. SUFENTANIL [Suspect]
     Active Substance: SUFENTANIL
     Indication: Sedation
     Dosage: UNK
     Route: 065
     Dates: start: 20200709, end: 20200717
  151. SUFENTANIL [Suspect]
     Active Substance: SUFENTANIL
     Indication: Gait disturbance
     Dosage: 0.33 MICROGRAM
     Route: 065
     Dates: start: 20200709, end: 20200717
  152. SUFENTANIL [Suspect]
     Active Substance: SUFENTANIL
     Dosage: UNK
     Route: 065
  153. POTASSIUM GLUCONATE [Suspect]
     Active Substance: POTASSIUM GLUCONATE
     Indication: Product used for unknown indication
     Dosage: UNK
     Route: 065
  154. INSULIN LISPRO [Suspect]
     Active Substance: INSULIN LISPRO
     Indication: Product used for unknown indication
     Dosage: 1 IU, CO
     Route: 065
     Dates: start: 20200709, end: 20200730
  155. URAPIDIL [Suspect]
     Active Substance: URAPIDIL
     Indication: Hypertension
     Dosage: 5 MG/ HR, CO
     Route: 065
     Dates: start: 20200709, end: 20200709
  156. MORPHINE HYDROCHLORIDE [Suspect]
     Active Substance: MORPHINE HYDROCHLORIDE
     Indication: Product used for unknown indication
     Dosage: UNK
     Route: 065
  157. RACECADOTRIL [Suspect]
     Active Substance: RACECADOTRIL
     Indication: Product used for unknown indication
     Dosage: 100 MILLIGRAM
     Route: 065
     Dates: start: 20200727, end: 20200804
  158. OTILIMAB [Suspect]
     Active Substance: OTILIMAB
     Indication: COVID-19
     Dosage: 1 DOSAGE FORM
     Route: 058
     Dates: start: 20200708
  159. OTILIMAB [Suspect]
     Active Substance: OTILIMAB
     Indication: Coronavirus infection
  160. PIPERACILLIN SODIUM\TAZOBACTAM SODIUM [Suspect]
     Active Substance: PIPERACILLIN SODIUM\TAZOBACTAM SODIUM
     Indication: Pneumonia
     Dosage: 12 GRAM
     Route: 065
     Dates: start: 20200723, end: 20200730
  161. PIPERACILLIN SODIUM\TAZOBACTAM SODIUM [Suspect]
     Active Substance: PIPERACILLIN SODIUM\TAZOBACTAM SODIUM
     Indication: Tracheobronchitis
     Dosage: 84 GRAM
     Route: 042
     Dates: start: 20200723, end: 20200730
  162. PIPERACILLIN SODIUM\TAZOBACTAM SODIUM [Suspect]
     Active Substance: PIPERACILLIN SODIUM\TAZOBACTAM SODIUM
     Dosage: 4 G, TID
     Route: 065
     Dates: start: 20200723, end: 20200730
  163. PIPERACILLIN SODIUM\TAZOBACTAM SODIUM [Suspect]
     Active Substance: PIPERACILLIN SODIUM\TAZOBACTAM SODIUM
     Dosage: 12 GRAM, DAILY (4 GRAM, TID  )
     Route: 042
     Dates: start: 20200723, end: 20200730
  164. CISATRACURIUM BESYLATE [Suspect]
     Active Substance: CISATRACURIUM BESYLATE
     Indication: Neuromuscular blocking therapy
     Dosage: 20 MG, DAILY
     Route: 065
     Dates: start: 20200715, end: 20200715
  165. CLONIDINE [Suspect]
     Active Substance: CLONIDINE
     Indication: Hypertension
     Dosage: UNK UNK, DAILY
     Route: 042
     Dates: start: 20200717, end: 20200717
  166. DIAMOX SEQUELS [Suspect]
     Active Substance: ACETAZOLAMIDE
     Indication: Product used for unknown indication
     Dosage: UNK
     Route: 065
  167. DIAMOX SEQUELS [Suspect]
     Active Substance: ACETAZOLAMIDE
     Dosage: UNK
     Route: 058
  168. DIAMOX SEQUELS [Suspect]
     Active Substance: ACETAZOLAMIDE
     Route: 065
  169. DIAMOX SEQUELS [Suspect]
     Active Substance: ACETAZOLAMIDE
     Dosage: UNK
     Route: 065
  170. DIAMOX SEQUELS [Suspect]
     Active Substance: ACETAZOLAMIDE
     Dosage: UNK
     Route: 058
  171. METHYLPREDNISOLONE [Suspect]
     Active Substance: METHYLPREDNISOLONE
     Indication: Acute respiratory distress syndrome
     Dosage: 1200 MG, DAILY [QD]
     Route: 065
     Dates: start: 20200708, end: 20210723
  172. METHYLPREDNISOLONE [Suspect]
     Active Substance: METHYLPREDNISOLONE
     Dosage: 1800 MG, UNK
     Route: 065
  173. METHYLPREDNISOLONE [Suspect]
     Active Substance: METHYLPREDNISOLONE
     Dosage: 120 MG, DAILY
     Route: 065
     Dates: start: 20200708, end: 20200723
  174. METHYLPREDNISOLONE [Suspect]
     Active Substance: METHYLPREDNISOLONE
     Dosage: 1200 MILLIGRAM, QD
     Route: 065
  175. FUROSEMIDE [Suspect]
     Active Substance: FUROSEMIDE
     Indication: Product used for unknown indication
     Dosage: UNK
     Route: 065
  176. MIDAZOLAM [Suspect]
     Active Substance: MIDAZOLAM
     Indication: Sedation
     Dosage: 5 MG, QH
     Route: 042
     Dates: start: 20200709, end: 20200713
  177. CLONIDINE [Suspect]
     Active Substance: CLONIDINE
     Indication: Hypertension
     Dosage: UNK
     Route: 065
  178. CLONIDINE [Suspect]
     Active Substance: CLONIDINE
     Dosage: UNK
     Route: 065
     Dates: start: 20200717, end: 20200717
  179. ISOPROTERENOL HYDROCHLORIDE [Suspect]
     Active Substance: ISOPROTERENOL HYDROCHLORIDE
     Indication: Product used for unknown indication
     Dosage: UNK
     Route: 065
     Dates: start: 20200711, end: 20210713
  180. FENOTEROL\IPRATROPIUM [Suspect]
     Active Substance: FENOTEROL\IPRATROPIUM
     Indication: Inhalation therapy
     Dosage: 0.5 MG, TID
     Dates: start: 20200730, end: 20200803
  181. FENOTEROL\IPRATROPIUM [Suspect]
     Active Substance: FENOTEROL\IPRATROPIUM
     Dosage: 6 MG
  182. FENOTEROL\IPRATROPIUM [Suspect]
     Active Substance: FENOTEROL\IPRATROPIUM
     Dosage: 1.5 MILLIGRAM, TID
     Dates: start: 20200730, end: 20200803
  183. REMIFENTANIL HYDROCHLORIDE [Suspect]
     Active Substance: REMIFENTANIL HYDROCHLORIDE
     Indication: Sedation
     Dosage: UNK
     Route: 042
     Dates: start: 20200720, end: 20200730
  184. REMIFENTANIL HYDROCHLORIDE [Suspect]
     Active Substance: REMIFENTANIL HYDROCHLORIDE
     Dosage: 1 MICROGRAM
     Route: 042
     Dates: start: 20200720, end: 20200730
  185. REMIFENTANIL HYDROCHLORIDE [Suspect]
     Active Substance: REMIFENTANIL HYDROCHLORIDE
     Dosage: 0.1 MICROGRAM (0.1 MCG/KG/MIN, CO)
     Route: 042
     Dates: start: 20200720, end: 20200730
  186. CISATRACURIUM BESYLATE [Suspect]
     Active Substance: CISATRACURIUM BESYLATE
     Indication: Endotracheal intubation
     Dosage: UNK
     Route: 065
  187. CISATRACURIUM BESYLATE [Suspect]
     Active Substance: CISATRACURIUM BESYLATE
     Dosage: 20 MILLIGRAM,QD
     Route: 065
     Dates: start: 20200715, end: 20200715
  188. ATORVASTATIN [Concomitant]
     Active Substance: ATORVASTATIN
     Indication: Product used for unknown indication
     Dosage: UNK
     Route: 065
  189. ATORVASTATIN [Concomitant]
     Active Substance: ATORVASTATIN
     Dosage: UNK
     Route: 065
  190. ATORVASTATIN [Concomitant]
     Active Substance: ATORVASTATIN
     Dosage: UNK
     Route: 065
  191. ATORVASTATIN [Concomitant]
     Active Substance: ATORVASTATIN
     Route: 065
  192. ATORVASTATIN [Concomitant]
     Active Substance: ATORVASTATIN
     Indication: Product used for unknown indication
     Dosage: UNK
     Route: 065
  193. ATORVASTATIN [Concomitant]
     Active Substance: ATORVASTATIN
     Indication: Product used for unknown indication
     Dosage: UNK
     Route: 065
  194. ATORVASTATIN [Concomitant]
     Active Substance: ATORVASTATIN
     Dosage: UNK
     Route: 065
  195. ATORVASTATIN [Concomitant]
     Active Substance: ATORVASTATIN
     Dosage: UNK
     Route: 065
  196. POTASSIUM GLUCONATE [Concomitant]
     Active Substance: POTASSIUM GLUCONATE
     Indication: Product used for unknown indication
     Dosage: UNK
     Route: 065
  197. POTASSIUM GLUCONATE [Concomitant]
     Active Substance: POTASSIUM GLUCONATE
     Dosage: UNK
     Route: 065
  198. POTASSIUM GLUCONATE [Concomitant]
     Active Substance: POTASSIUM GLUCONATE
     Dosage: UNK
     Route: 065
  199. POTASSIUM GLUCONATE [Concomitant]
     Active Substance: POTASSIUM GLUCONATE
     Route: 065
  200. AMIODARONE [Concomitant]
     Active Substance: AMIODARONE
     Indication: Atrial fibrillation
     Dosage: UNK
     Route: 065
     Dates: start: 20200725, end: 20200727
  201. AMIODARONE [Concomitant]
     Active Substance: AMIODARONE
     Dosage: UNK
     Route: 065
  202. AMIODARONE [Concomitant]
     Active Substance: AMIODARONE
     Dosage: UNK
     Route: 065
  203. HYDROXYUREA [Concomitant]
     Active Substance: HYDROXYUREA
     Indication: Product used for unknown indication
     Dosage: UNK
     Route: 065
  204. HYDROXYUREA [Concomitant]
     Active Substance: HYDROXYUREA
     Dosage: UNK
     Route: 065
  205. HYDROXYUREA [Concomitant]
     Active Substance: HYDROXYUREA
     Dosage: UNK
     Route: 065
  206. HYDROXYUREA [Concomitant]
     Active Substance: HYDROXYUREA
     Dosage: UNK
     Route: 065
  207. KARDEGIC [Concomitant]
     Active Substance: ASPIRIN DL-LYSINE
     Indication: Product used for unknown indication
     Dosage: UNK
     Route: 065
  208. KARDEGIC [Concomitant]
     Active Substance: ASPIRIN DL-LYSINE
     Dosage: UNK
     Route: 065
  209. KARDEGIC [Concomitant]
     Active Substance: ASPIRIN DL-LYSINE
     Dosage: UNK
     Route: 065

REACTIONS (1)
  - Toxic epidermal necrolysis [Fatal]

NARRATIVE: CASE EVENT DATE: 20200809
